FAERS Safety Report 19134412 (Version 1)
Quarter: 2021Q2

REPORT INFORMATION
  Report Type: Spontaneous
  Country: US (occurrence: US)
  Receive Date: 20210414
  Receipt Date: 20210414
  Transmission Date: 20210717
  Serious: No
  Sender: FDA-Public Use
  Company Number: None

PATIENT
  Age: 63 Year
  Sex: Female
  Weight: 78.75 kg

DRUGS (5)
  1. ESTRADIOL CREAM [Concomitant]
     Active Substance: ESTRADIOL
  2. VITAMIN D [Concomitant]
     Active Substance: VITAMIN D NOS
  3. RIFAMPIN. [Suspect]
     Active Substance: RIFAMPIN
     Indication: LATENT TUBERCULOSIS
     Dosage: ?          QUANTITY:1 TABLET(S);?
     Route: 048
     Dates: start: 20210304, end: 20210321
  4. RETIN?A [Concomitant]
     Active Substance: TRETINOIN
  5. CALCIUM [Concomitant]
     Active Substance: CALCIUM

REACTIONS (3)
  - Influenza like illness [None]
  - Pallor [None]
  - Blood urine present [None]

NARRATIVE: CASE EVENT DATE: 20210309
